FAERS Safety Report 7341535-1 (Version None)
Quarter: 2011Q1

REPORT INFORMATION
  Report Type: 
  Country: None (occurrence: None)
  Receive Date: 20110309
  Receipt Date: 20110307
  Transmission Date: 20110831
  Serious: Yes (Other)
  Sender: FDA-Public Use
  Company Number: US-PFIZER INC-2011050015

PATIENT
  Sex: Male
  Weight: 104.3 kg

DRUGS (5)
  1. GLIPIZIDE [Concomitant]
     Dosage: UNK
  2. LIPITOR [Suspect]
     Indication: BLOOD CHOLESTEROL INCREASED
     Dosage: 40 MG, DAILY
     Route: 048
     Dates: start: 19860101
  3. PAROXETINE [Concomitant]
     Dosage: UNK
  4. GLICLAZIDE [Concomitant]
     Dosage: 60 MG, UNK
  5. FLAXSEED OIL [Concomitant]
     Dosage: UNK

REACTIONS (2)
  - CARDIAC DISORDER [None]
  - MYOCARDIAL INFARCTION [None]
